FAERS Safety Report 5634168-6 (Version None)
Quarter: 2008Q1

REPORT INFORMATION
  Report Type: 
  Country: None (occurrence: None)
  Receive Date: 20080219
  Receipt Date: 20080211
  Transmission Date: 20080703
  Serious: Yes (Hospitalization)
  Sender: FDA-Public Use
  Company Number: 2008SP003058

PATIENT
  Age: 35 Year
  Sex: Male

DRUGS (3)
  1. TEMODAL [Suspect]
     Indication: GLIOBLASTOMA MULTIFORME
     Dosage: PO
     Route: 048
  2. BETAPRED [Suspect]
     Indication: ANAEMIA
     Dosage: PO
     Route: 048
  3. BETAPRED [Suspect]
     Indication: THROMBOCYTOPENIA
     Dosage: PO
     Route: 048

REACTIONS (4)
  - ADRENAL INSUFFICIENCY [None]
  - ANAEMIA [None]
  - HYPOTENSION [None]
  - MYELODYSPLASTIC SYNDROME [None]
